FAERS Safety Report 7717781-1 (Version None)
Quarter: 2011Q3

REPORT INFORMATION
  Report Type: 
  Country: None (occurrence: None)
  Receive Date: 20110824
  Receipt Date: 20110809
  Transmission Date: 20111222
  Serious: Yes (Other)
  Sender: FDA-Public Use
  Company Number: AMAG201100170

PATIENT
  Age: 75 Year
  Sex: Male

DRUGS (11)
  1. HYTRIN [Concomitant]
  2. PLAVIX [Concomitant]
  3. FERAHEME [Suspect]
     Indication: IRON DEFICIENCY ANAEMIA
     Dosage: 510 MG, SINGLE, INTRAVENOUS
     Route: 042
     Dates: start: 20110726, end: 20110726
  4. ASPIRIN [Concomitant]
  5. VYTORIN [Concomitant]
  6. LOPRESSOR [Concomitant]
  7. SYNTHROID [Concomitant]
  8. PRILOSEC [Concomitant]
  9. GLIPIZIDE [Concomitant]
  10. CARDIZEM CD [Concomitant]
  11. PROCRIT [Concomitant]

REACTIONS (7)
  - LOSS OF CONSCIOUSNESS [None]
  - VOMITING [None]
  - FEELING HOT [None]
  - DYSPNOEA [None]
  - HYPOTENSION [None]
  - PULSE ABSENT [None]
  - BRADYCARDIA [None]
